FAERS Safety Report 9048536 (Version 4)
Quarter: 2014Q1

REPORT INFORMATION
  Report Type: Spontaneous
  Country: US (occurrence: None)
  Receive Date: 20130116
  Receipt Date: 20140220
  Transmission Date: 20141002
  Serious: Yes (Hospitalization, Other)
  Sender: FDA-Public Use
  Company Number: ADR-2012-02312

PATIENT
  Sex: Female

DRUGS (5)
  1. BACLOFEN [Suspect]
     Indication: POST LAMINECTOMY SYNDROME
     Dosage: 59 MCG/DAY
  2. BUPIVACAINE [Suspect]
  3. FENTANYL [Suspect]
  4. PREDNISONE [Suspect]
  5. LOTION (UNSPECIFIED MEDICATION) [Suspect]

REACTIONS (21)
  - Migraine [None]
  - Blood sodium decreased [None]
  - Medical device pain [None]
  - Infusion site pain [None]
  - Pain in extremity [None]
  - Device malfunction [None]
  - Headache [None]
  - Pain in extremity [None]
  - Pain [None]
  - Asthenia [None]
  - Fibrosis [None]
  - Implant site pain [None]
  - Performance status decreased [None]
  - No therapeutic response [None]
  - Scar [None]
  - Polydipsia [None]
  - Infection [None]
  - Arthritis [None]
  - Swelling [None]
  - Depressed mood [None]
  - Medical device discomfort [None]
